FAERS Safety Report 22398591 (Version 1)
Quarter: 2023Q2

REPORT INFORMATION
  Report Type: Spontaneous
  Country: US (occurrence: US)
  Receive Date: 20230602
  Receipt Date: 20230602
  Transmission Date: 20230721
  Serious: No
  Sender: FDA-Public Use
  Company Number: US-SA-SAC20230530000780

PATIENT
  Age: 64 Year
  Sex: Female
  Weight: 47.166 kg

DRUGS (2)
  1. DUPIXENT [Suspect]
     Active Substance: DUPILUMAB
     Indication: Dermatitis atopic
     Dosage: UNK UNK, 1X
     Route: 058
     Dates: start: 202211, end: 202211
  2. DUPIXENT [Suspect]
     Active Substance: DUPILUMAB
     Dosage: 300 MG, QOW
     Route: 058

REACTIONS (9)
  - Chest pain [Unknown]
  - Anxiety [Unknown]
  - Memory impairment [Unknown]
  - Chest discomfort [Unknown]
  - Brain fog [Unknown]
  - Gingival disorder [Unknown]
  - Throat irritation [Unknown]
  - Blood pressure abnormal [Unknown]
  - Dizziness [Unknown]

NARRATIVE: CASE EVENT DATE: 20221101
